FAERS Safety Report 14651304 (Version 1)
Quarter: 2018Q1

REPORT INFORMATION
  Report Type: Spontaneous
  Country: BR (occurrence: BR)
  Receive Date: 20180316
  Receipt Date: 20180316
  Transmission Date: 20180509
  Serious: Yes (Hospitalization, Other)
  Sender: FDA-Public Use
  Company Number: BR-009507513-1803BRA003978

PATIENT
  Age: 31 Year
  Sex: Female
  Weight: 72 kg

DRUGS (2)
  1. NUVARING [Suspect]
     Active Substance: ETHINYL ESTRADIOL\ETONOGESTREL
     Indication: CONTRACEPTION
     Dosage: 1 VAGINAL RING, UNK
     Route: 067
  2. NUVARING [Suspect]
     Active Substance: ETHINYL ESTRADIOL\ETONOGESTREL
     Dosage: 1 VAGINAL RING
     Route: 067
     Dates: start: 20180215

REACTIONS (4)
  - Calculus urinary [Unknown]
  - Metrorrhagia [Not Recovered/Not Resolved]
  - Kidney infection [Unknown]
  - Urethritis [Unknown]

NARRATIVE: CASE EVENT DATE: 2018
